FAERS Safety Report 17117320 (Version 1)
Quarter: 2019Q4

REPORT INFORMATION
  Report Type: Spontaneous
  Country: GB (occurrence: GB)
  Receive Date: 20191205
  Receipt Date: 20191205
  Transmission Date: 20200122
  Serious: Yes (Other)
  Sender: FDA-Public Use
  Company Number: GB-AMERICAN REGENT INC-2019002668

PATIENT
  Age: 26 Year
  Sex: Female

DRUGS (3)
  1. CLINDAMYCIN. [Concomitant]
     Active Substance: CLINDAMYCIN
     Indication: PRODUCT USED FOR UNKNOWN INDICATION
     Dosage: 300 MILLIGRAM, QID AT 04:30, 10:30, 16:30 AND 22:30 HOURS
     Route: 065
     Dates: start: 20190419, end: 20190420
  2. FERINJECT [Suspect]
     Active Substance: FERRIC CARBOXYMALTOSE
     Indication: PRODUCT USED FOR UNKNOWN INDICATION
     Dosage: 1 GRAM DILUTED IN 100 ML 0.9% STERILE SODIUM CHLORIDE SOLUTION
     Dates: start: 20190420, end: 20190420
  3. DALTEPARIN [Concomitant]
     Active Substance: DALTEPARIN
     Indication: PRODUCT USED FOR UNKNOWN INDICATION
     Dosage: 5000 INTERNATIONAL UNIT, QD AT 06:00 HOURS
     Route: 065
     Dates: start: 20190419, end: 20190420

REACTIONS (3)
  - Infusion site extravasation [Not Recovered/Not Resolved]
  - Device dislocation [Unknown]
  - Infusion site discolouration [Not Recovered/Not Resolved]

NARRATIVE: CASE EVENT DATE: 201904
